FAERS Safety Report 8678917 (Version 4)
Quarter: 2012Q4

REPORT INFORMATION
  Report Type: 
  Country: JP (occurrence: JP)
  Receive Date: 20120723
  Receipt Date: 20121107
  Transmission Date: 20130627
  Serious: Yes (Hospitalization, Disabling)
  Sender: FDA-Public Use
  Company Number: JP-GLAXOSMITHKLINE-B0816030A

PATIENT
  Age: 83 Year
  Sex: Male
  Weight: 57 kg

DRUGS (1)
  1. VALTREX [Suspect]
     Indication: HERPES ZOSTER
     Dosage: 1000MG Three times per day
     Route: 048
     Dates: start: 20120710

REACTIONS (12)
  - Encephalopathy [Recovered/Resolved]
  - Renal disorder [Not Recovered/Not Resolved]
  - Depressed level of consciousness [Unknown]
  - Urine output decreased [Unknown]
  - Chromaturia [Unknown]
  - Dyskinesia [Unknown]
  - Dyslalia [Unknown]
  - Blood creatinine increased [Unknown]
  - Blood urea increased [Unknown]
  - White blood cell count increased [Unknown]
  - C-reactive protein increased [Unknown]
  - Sepsis [Unknown]
